FAERS Safety Report 8529762-9 (Version None)
Quarter: 2012Q3

REPORT INFORMATION
  Report Type: 
  Country: None (occurrence: None)
  Receive Date: 20120723
  Receipt Date: 20120713
  Transmission Date: 20120928
  Serious: Yes (Disabling)
  Sender: FDA-Public Use
  Company Number: US-JNJFOC-20120708020

PATIENT
  Sex: Male
  Weight: 77.11 kg

DRUGS (1)
  1. DURAGESIC-100 [Suspect]
     Indication: BACK PAIN
     Dosage: 100 UG/HR AND 50 UG/HR
     Route: 062
     Dates: start: 20090101

REACTIONS (6)
  - PAIN [None]
  - WITHDRAWAL SYNDROME [None]
  - ABASIA [None]
  - PRODUCT QUALITY ISSUE [None]
  - BREAKTHROUGH PAIN [None]
  - DRUG DOSE OMISSION [None]
